FAERS Safety Report 7815169 (Version 3)
Quarter: 2015Q2

REPORT INFORMATION
  Report Type: Spontaneous
  Country: GB (occurrence: GB)
  Receive Date: 20110216
  Receipt Date: 20150609
  Transmission Date: 20150821
  Serious: Yes (Other)
  Sender: FDA-Public Use
  Company Number: GB-JNJFOC-20110202259

PATIENT
  Age: 54 Year
  Sex: Male
  Weight: 49 kg

DRUGS (2)
  1. PARACETAMOL [Suspect]
     Active Substance: ACETAMINOPHEN
     Route: 065
  2. PARACETAMOL [Suspect]
     Active Substance: ACETAMINOPHEN
     Indication: BACK PAIN
     Route: 065

REACTIONS (4)
  - Overdose [Recovered/Resolved]
  - Liver injury [Recovered/Resolved]
  - Blindness [Recovered/Resolved]
  - Glucose tolerance impaired [Recovered/Resolved]
